FAERS Safety Report 5410482-4 (Version None)
Quarter: 2007Q3

REPORT INFORMATION
  Report Type: 
  Country: None (occurrence: None)
  Receive Date: 20070810
  Receipt Date: 20070111
  Transmission Date: 20080115
  Serious: No
  Sender: FDA-Public Use
  Company Number: A0635345A

PATIENT
  Age: 50 Year
  Sex: Female

DRUGS (2)
  1. PAROXETINE [Suspect]
     Indication: DRUG USE FOR UNKNOWN INDICATION
     Route: 048
     Dates: end: 20070104
  2. NO CONCURRENT MEDICATION [Concomitant]

REACTIONS (4)
  - AFFECT LABILITY [None]
  - ASTHENIA [None]
  - DRUG WITHDRAWAL SYNDROME [None]
  - INFLUENZA LIKE ILLNESS [None]
